FAERS Safety Report 5221247-0 (Version None)
Quarter: 2007Q1

REPORT INFORMATION
  Report Type: 
  Country: None (occurrence: None)
  Receive Date: 20061201
  Receipt Date: 20060731
  Transmission Date: 20070707
  Serious: No
  Sender: FDA-Public Use
  Company Number: 2006PV018462

PATIENT
  Age: 61 Year
  Sex: Male

DRUGS (9)
  1. BYETTA [Suspect]
     Indication: DIABETES MELLITUS NON-INSULIN-DEPENDENT
     Dosage: SEE IMAGE
     Route: 058
     Dates: start: 20060401, end: 20060501
  2. BYETTA [Suspect]
     Indication: DIABETES MELLITUS NON-INSULIN-DEPENDENT
     Dosage: SEE IMAGE
     Route: 058
     Dates: start: 20060501
  3. PRANDIN [Concomitant]
  4. METFORMIN HCL [Concomitant]
  5. LIPITOR [Concomitant]
  6. AVAPRO [Concomitant]
  7. FLOMAX [Concomitant]
  8. ALLOPURINOL SODIUM [Concomitant]
  9. ACTOS [Concomitant]

REACTIONS (4)
  - CHEST PAIN [None]
  - DYSPHAGIA [None]
  - INJECTION SITE BRUISING [None]
  - OROPHARYNGEAL SWELLING [None]
